FAERS Safety Report 18471635 (Version 2)
Quarter: 2020Q4

REPORT INFORMATION
  Report Type: Spontaneous
  Country: GB (occurrence: GB)
  Receive Date: 20201105
  Receipt Date: 20201228
  Transmission Date: 20210114
  Serious: Yes (Other)
  Sender: FDA-Public Use
  Company Number: GB-ASTRAZENECA-2020SF42218

PATIENT
  Age: 58 Year
  Sex: Female
  Weight: 54 kg

DRUGS (32)
  1. MONTELUKAST [Concomitant]
     Active Substance: MONTELUKAST SODIUM
  2. LYMECYCLINE [Concomitant]
     Active Substance: LYMECYCLINE
  3. OMEPRAZOLE. [Concomitant]
     Active Substance: OMEPRAZOLE
  4. FOLIC ACID. [Concomitant]
     Active Substance: FOLIC ACID
  5. IPRATROPIUM BROMIDE. [Concomitant]
     Active Substance: IPRATROPIUM BROMIDE
     Dosage: 500MICROGRAM/2ML
  6. MEBEVERINE [Concomitant]
     Active Substance: MEBEVERINE
  7. TOPIRAMATE. [Concomitant]
     Active Substance: TOPIRAMATE
  8. SALBUTAMOL [Concomitant]
     Active Substance: ALBUTEROL
     Dosage: 2.5MG/2.5ML
  9. AZITHROMYCIN ANHYDROUS. [Concomitant]
     Active Substance: AZITHROMYCIN ANHYDROUS
  10. RAMIPRIL. [Concomitant]
     Active Substance: RAMIPRIL
  11. LORATADINE. [Concomitant]
     Active Substance: LORATADINE
  12. PREDNISOLONE. [Concomitant]
     Active Substance: PREDNISOLONE
  13. CALCICHEW D3 [Concomitant]
     Active Substance: CALCIUM\CHOLECALCIFEROL
  14. SYMBICORT [Concomitant]
     Active Substance: BUDESONIDE\FORMOTEROL FUMARATE DIHYDRATE
     Dosage: 200/6
  15. UNIPHYLLIN CONTINUS [Concomitant]
     Active Substance: THEOPHYLLINE ANHYDROUS
     Dosage: 300MG OR 200MG
  16. CARBOCISTEINE [Concomitant]
     Active Substance: CARBOCYSTEINE
  17. FOSTAIR [Concomitant]
     Active Substance: BECLOMETHASONE\FORMOTEROL
     Dosage: 200MICROGRAMS/DOSE 6MICROGRAMS/DOSE
     Route: 055
  18. TOLTERODINE [Concomitant]
     Active Substance: TOLTERODINE
  19. SUMATRIPTAN. [Concomitant]
     Active Substance: SUMATRIPTAN
  20. FASENRA [Suspect]
     Active Substance: BENRALIZUMAB
     Indication: ASTHMA
     Dosage: 30.0MG UNKNOWN
     Route: 051
     Dates: start: 20200305
  21. DOCUSATE [Concomitant]
     Active Substance: DOCUSATE
  22. DIAZEPAM. [Concomitant]
     Active Substance: DIAZEPAM
  23. HYPROMELLOSE [Concomitant]
     Active Substance: HYPROMELLOSES
  24. ALENDRONIC ACID [Concomitant]
     Active Substance: ALENDRONIC ACID
  25. ZINERYT [Concomitant]
  26. FEXOFENADINE [Concomitant]
     Active Substance: FEXOFENADINE HYDROCHLORIDE
  27. SODIUM CROMOGLICATE [Concomitant]
     Active Substance: CROMOLYN SODIUM
  28. SPIRIVA [Concomitant]
     Active Substance: TIOTROPIUM BROMIDE MONOHYDRATE
     Dosage: 2.5UG/INHAL
     Route: 055
  29. VERAPAMIL [Concomitant]
     Active Substance: VERAPAMIL HYDROCHLORIDE
  30. GABAPENTIN. [Concomitant]
     Active Substance: GABAPENTIN
  31. ACETYLSALICYLIC ACID [Concomitant]
     Active Substance: ASPIRIN
  32. ACCORD-UK SALBUTAMOL [Concomitant]
     Route: 055

REACTIONS (3)
  - Myalgia [Not Recovered/Not Resolved]
  - Osteoarthritis [Not Recovered/Not Resolved]
  - Headache [Not Recovered/Not Resolved]

NARRATIVE: CASE EVENT DATE: 20200907
